FAERS Safety Report 13794580 (Version 1)
Quarter: 2017Q3

REPORT INFORMATION
  Report Type: Spontaneous
  Country: IE (occurrence: IE)
  Receive Date: 20170726
  Receipt Date: 20170726
  Transmission Date: 20171127
  Serious: Yes (Other)
  Sender: FDA-Public Use
  Company Number: IE-TEVA-788613ACC

PATIENT
  Age: 56 Year
  Sex: Male

DRUGS (3)
  1. WARFARIN [Concomitant]
     Active Substance: WARFARIN
  2. BISOPROLOL FUMARATE (GENERIC) [Concomitant]
  3. ROSUVASTATIN TEVA [Suspect]
     Active Substance: ROSUVASTATIN
     Dates: start: 201705, end: 20170623

REACTIONS (5)
  - Myalgia [Unknown]
  - Mobility decreased [Unknown]
  - Pain in extremity [Unknown]
  - Fatigue [Unknown]
  - Product substitution issue [Unknown]
